FAERS Safety Report 19694678 (Version 5)
Quarter: 2021Q3

REPORT INFORMATION
  Report Type: Report from Study
  Country: CO (occurrence: CO)
  Receive Date: 20210813
  Receipt Date: 20210916
  Transmission Date: 20211014
  Serious: Yes (Hospitalization, Other)
  Sender: FDA-Public Use
  Company Number: CO-AUROBINDO-AUR-APL-2021-008398

PATIENT
  Age: 63 Year
  Sex: Male

DRUGS (3)
  1. FOLOTYN [Suspect]
     Active Substance: PRALATREXATE
     Indication: PERIPHERAL T-CELL LYMPHOMA UNSPECIFIED
     Dosage: 50 MILLIGRAM, EVERY WEEK
     Route: 042
     Dates: start: 20200714
  2. FOLOTYN [Suspect]
     Active Substance: PRALATREXATE
     Indication: ANAPLASTIC LARGE-CELL LYMPHOMA
     Dosage: 60 MILLIGRAM, DAILY
     Route: 042
     Dates: start: 20200909
  3. FOLOTYN [Suspect]
     Active Substance: PRALATREXATE
     Dosage: 50 MILLIGRAM
     Route: 042
     Dates: start: 20200722, end: 20210224

REACTIONS (2)
  - Cerebral ischaemia [Unknown]
  - Vertigo [Recovering/Resolving]

NARRATIVE: CASE EVENT DATE: 20210210
